FAERS Safety Report 7862792 (Version 2)
Quarter: 2012Q4

REPORT INFORMATION
  Report Type: 
  Country: US (occurrence: US)
  Receive Date: 20110318
  Receipt Date: 20121224
  Transmission Date: 20130627
  Serious: Yes (Other)
  Sender: FDA-Public Use
  Company Number: US-ROCHE-711086

PATIENT
  Age: 55 Year
  Sex: Female
  Weight: 127.9 kg

DRUGS (2)
  1. PEGASYS [Suspect]
     Indication: HEPATITIS C
     Route: 058
     Dates: start: 20100614, end: 20120509
  2. RIBAPAK [Suspect]
     Indication: HEPATITIS C
     Dosage: in divided doses
     Route: 048
     Dates: end: 20120509

REACTIONS (37)
  - Fall [Unknown]
  - Blood glucose abnormal [Unknown]
  - Influenza [Unknown]
  - Pain [Unknown]
  - Chills [Unknown]
  - Rheumatoid arthritis [Unknown]
  - Injection site bruising [Not Recovered/Not Resolved]
  - Burning sensation [Unknown]
  - Urinary tract infection [Unknown]
  - Hepatomegaly [Not Recovered/Not Resolved]
  - Pruritus [Unknown]
  - Fatigue [Unknown]
  - Nephrolithiasis [Unknown]
  - Anaemia [Unknown]
  - Haemoglobin decreased [Unknown]
  - Red blood cell count decreased [Unknown]
  - Asthenia [Unknown]
  - Contusion [Unknown]
  - Dysgeusia [Unknown]
  - Loss of consciousness [Unknown]
  - Gait disturbance [Unknown]
  - Hypoaesthesia [Unknown]
  - Muscle spasms [Unknown]
  - Hypoaesthesia [Unknown]
  - Pain [Unknown]
  - Fatigue [Unknown]
  - Chest pain [Unknown]
  - Bronchitis [Unknown]
  - Rash [Unknown]
  - Blood uric acid increased [Unknown]
  - Tachycardia [Unknown]
  - Nausea [Unknown]
  - Headache [Unknown]
  - Insomnia [Unknown]
  - Oedema [Unknown]
  - Irritability [Unknown]
  - Anaemia [Unknown]
